FAERS Safety Report 19645015 (Version 1)
Quarter: 2021Q3

REPORT INFORMATION
  Report Type: Spontaneous
  Country: US (occurrence: US)
  Receive Date: 20210802
  Receipt Date: 20210802
  Transmission Date: 20211014
  Serious: No
  Sender: FDA-Public Use
  Company Number: US-BAUSCH-BL-2021-022240

PATIENT
  Sex: Female

DRUGS (2)
  1. DIHYDROERGOTAMINE MESYLATE, USP NASAL SPRAY [Suspect]
     Active Substance: DIHYDROERGOTAMINE MESYLATE
     Indication: PRODUCT USED FOR UNKNOWN INDICATION
     Route: 045
  2. MIGRANAL [Suspect]
     Active Substance: DIHYDROERGOTAMINE MESYLATE
     Indication: PRODUCT USED FOR UNKNOWN INDICATION
     Route: 065

REACTIONS (3)
  - Product substitution issue [Unknown]
  - Product availability issue [Unknown]
  - Drug ineffective [Unknown]
